FAERS Safety Report 7628543-8 (Version None)
Quarter: 2011Q3

REPORT INFORMATION
  Report Type: 
  Country: None (occurrence: None)
  Receive Date: 20110722
  Receipt Date: 20110714
  Transmission Date: 20111222
  Serious: Yes (Hospitalization, Other)
  Sender: FDA-Public Use
  Company Number: US-ASTELLAS-2011US002969

PATIENT
  Sex: Male

DRUGS (11)
  1. CISPLATIN W/DOCETAXEL [Suspect]
     Indication: LIP AND/OR ORAL CAVITY CANCER
     Dosage: 75 MG/M2, TOTAL DOSE
     Route: 042
     Dates: start: 20110412, end: 20110412
  2. CISPLATIN W/DOCETAXEL [Suspect]
     Dosage: 75 MG/M2, TOTAL DOSE
     Route: 042
     Dates: start: 20110615, end: 20110615
  3. METHYLDOPA [Concomitant]
     Indication: OROPHARYNGEAL PAIN
     Dosage: 30 ML, QID
  4. METHYLDOPA [Concomitant]
     Indication: COUGH
  5. HYDROCODONE BITARTRATE [Concomitant]
  6. DILAUDID [Concomitant]
     Indication: DISCOMFORT
  7. REGLAN [Concomitant]
  8. CISPLATIN W/DOCETAXEL [Suspect]
     Dosage: 75 MG/M2, TOTAL DOSE
     Route: 042
     Dates: start: 20110525, end: 20110525
  9. ERLOTINIB HYDROCHLORIDE [Suspect]
     Indication: LIP AND/OR ORAL CAVITY CANCER
     Dosage: 150 MG, UID/QD
     Route: 048
     Dates: start: 20110412, end: 20110502
  10. ERLOTINIB HYDROCHLORIDE [Suspect]
     Dosage: 100 MG, UID/QD
     Route: 048
     Dates: start: 20110503
  11. CISPLATIN W/DOCETAXEL [Suspect]
     Dosage: 75 MG/M2, TOTAL DOSE
     Route: 042
     Dates: start: 20110503, end: 20110503

REACTIONS (18)
  - MALNUTRITION [None]
  - HYPOMAGNESAEMIA [None]
  - DEHYDRATION [None]
  - ERYTHEMA [None]
  - HYPOCALCAEMIA [None]
  - PNEUMONIA [None]
  - HYPONATRAEMIA [None]
  - NAUSEA [None]
  - DIARRHOEA [None]
  - HYPOKALAEMIA [None]
  - ANAEMIA [None]
  - RASH [None]
  - HYPOALBUMINAEMIA [None]
  - POSTOPERATIVE WOUND INFECTION [None]
  - WEIGHT DECREASED [None]
  - DEVICE MALFUNCTION [None]
  - VOMITING [None]
  - LEUKOPENIA [None]
